FAERS Safety Report 4806043-8 (Version None)
Quarter: 2005Q4

REPORT INFORMATION
  Report Type: 
  Country: None (occurrence: None)
  Receive Date: 20051019
  Receipt Date: 20051004
  Transmission Date: 20060501
  Serious: Yes (Hospitalization, Other)
  Sender: FDA-Public Use
  Company Number: A-US2005-09510

PATIENT
  Age: 66 Year
  Sex: Female
  Weight: 65.3 kg

DRUGS (1)
  1. TRACLEER [Suspect]
     Indication: PULMONARY HYPERTENSION
     Dosage: ORAL
     Route: 048
     Dates: start: 20040101, end: 20041107

REACTIONS (37)
  - ABDOMINAL DISCOMFORT [None]
  - ABDOMINAL DISTENSION [None]
  - ABDOMINAL PAIN [None]
  - ABDOMINAL TENDERNESS [None]
  - ALANINE AMINOTRANSFERASE INCREASED [None]
  - ALPHA 1 FOETOPROTEIN INCREASED [None]
  - ANTINUCLEAR ANTIBODY POSITIVE [None]
  - ASCITES [None]
  - ASPARTATE AMINOTRANSFERASE INCREASED [None]
  - AUTOIMMUNE HEPATITIS [None]
  - BLOOD ALBUMIN DECREASED [None]
  - BLOOD ALKALINE PHOSPHATASE INCREASED [None]
  - BLOOD BILIRUBIN INCREASED [None]
  - BLOOD GLUCOSE INCREASED [None]
  - CHROMATURIA [None]
  - DIARRHOEA [None]
  - FAECES DISCOLOURED [None]
  - HEPATIC CIRRHOSIS [None]
  - HEPATIC NEOPLASM [None]
  - HEPATIC NEOPLASM MALIGNANT [None]
  - HEPATITIS ACUTE [None]
  - JAUNDICE [None]
  - KLEBSIELLA SEPSIS [None]
  - LIVER DISORDER [None]
  - LIVER FUNCTION TEST ABNORMAL [None]
  - MALNUTRITION [None]
  - NAUSEA [None]
  - PERITONITIS BACTERIAL [None]
  - PROTEIN TOTAL INCREASED [None]
  - PROTEINURIA [None]
  - PROTHROMBIN TIME PROLONGED [None]
  - RED BLOOD CELL SEDIMENTATION RATE INCREASED [None]
  - RENAL FAILURE ACUTE [None]
  - RENAL TUBULAR NECROSIS [None]
  - SPIDER NAEVUS [None]
  - VOMITING [None]
  - WHITE BLOOD CELL COUNT INCREASED [None]
